FAERS Safety Report 17519455 (Version 3)
Quarter: 2020Q1

REPORT INFORMATION
  Report Type: Spontaneous
  Country: JP (occurrence: JP)
  Receive Date: 20200310
  Receipt Date: 20200325
  Transmission Date: 20200409
  Serious: Yes (Other)
  Sender: FDA-Public Use
  Company Number: JP-GLAXOSMITHKLINE-JP2020JPN041074

PATIENT
  Age: 4 Decade
  Sex: Male

DRUGS (1)
  1. IMIGRAN STATDOSE [Suspect]
     Active Substance: SUMATRIPTAN
     Indication: CLUSTER HEADACHE
     Dosage: UNK
     Route: 058
     Dates: start: 20200107, end: 202002

REACTIONS (1)
  - Dependence [Recovered/Resolved]

NARRATIVE: CASE EVENT DATE: 2020
